FAERS Safety Report 5409877-4 (Version None)
Quarter: 2007Q3

REPORT INFORMATION
  Report Type: 
  Country: None (occurrence: None)
  Receive Date: 20070809
  Receipt Date: 20070731
  Transmission Date: 20080115
  Serious: Yes (Life-Threatening, Hospitalization, Other)
  Sender: FDA-Public Use
  Company Number: TW-PFIZER INC-2007063290

PATIENT
  Age: 59 Year
  Sex: Male
  Weight: 78 kg

DRUGS (3)
  1. CELEBREX [Suspect]
     Indication: MYALGIA
     Route: 048
  2. CELEBREX [Suspect]
     Indication: MUSCULOSKELETAL PAIN
  3. ETODOLAC [Concomitant]

REACTIONS (1)
  - ANAPHYLACTIC SHOCK [None]
